FAERS Safety Report 10652313 (Version 3)
Quarter: 2015Q2

REPORT INFORMATION
  Report Type: Report from Study
  Country: US (occurrence: None)
  Receive Date: 20141211
  Receipt Date: 20150506
  Transmission Date: 20150821
  Serious: Yes (Hospitalization, Other)
  Sender: FDA-Public Use
  Company Number: ADR-2014-02305

PATIENT
  Age: 34 Year
  Sex: Female

DRUGS (1)
  1. COMPOUNDED BACLOFEN INTRATHECAL [Suspect]
     Active Substance: BACLOFEN
     Indication: MUSCLE SPASTICITY
     Dosage: 139.88 MCG/DAY

REACTIONS (4)
  - Staphylococcus test positive [None]
  - Implant site infection [None]
  - General physical health deterioration [None]
  - Wound secretion [None]

NARRATIVE: CASE EVENT DATE: 20141118
